FAERS Safety Report 12323947 (Version 1)
Quarter: 2016Q2

REPORT INFORMATION
  Report Type: Report from Study
  Country: CA (occurrence: CA)
  Receive Date: 20160502
  Receipt Date: 20160502
  Transmission Date: 20160815
  Serious: Yes (Death)
  Sender: FDA-Public Use
  Company Number: CA-PFIZER INC-2016237906

PATIENT

DRUGS (2)
  1. LYNPARZA [Suspect]
     Active Substance: OLAPARIB
     Indication: COLORECTAL CANCER
     Dosage: 50 MG, DAILY
     Route: 048
  2. IRINOTECAN HCL [Suspect]
     Active Substance: IRINOTECAN HYDROCHLORIDE
     Indication: COLORECTAL CANCER
     Dosage: 200 MG/M2, EVERY 3 WEEKS

REACTIONS (2)
  - Colitis [Fatal]
  - Sepsis [Fatal]
